FAERS Safety Report 6678698-7 (Version None)
Quarter: 2010Q2

REPORT INFORMATION
  Report Type: 
  Country: None (occurrence: None)
  Receive Date: 20100413
  Receipt Date: 20100402
  Transmission Date: 20101027
  Serious: Yes (Hospitalization, Other)
  Sender: FDA-Public Use
  Company Number: PHHY2010JP18081

PATIENT
  Age: 77 Year
  Sex: Female

DRUGS (4)
  1. METOPIRONE [Suspect]
     Indication: CUSHING'S SYNDROME
     Route: 048
  2. METOPIRONE [Suspect]
     Dosage: UNK
     Route: 048
  3. DEXTROAMPHETAMINE [Concomitant]
  4. DEPRESSOR DRUGS [Concomitant]

REACTIONS (5)
  - ADRENAL INSUFFICIENCY [None]
  - BLOOD PRESSURE DECREASED [None]
  - DECREASED APPETITE [None]
  - HYPERTENSION [None]
  - NAUSEA [None]
